FAERS Safety Report 21286583 (Version 2)
Quarter: 2022Q3

REPORT INFORMATION
  Report Type: Spontaneous
  Country: US (occurrence: US)
  Receive Date: 20220902
  Receipt Date: 20220921
  Transmission Date: 20221026
  Serious: No
  Sender: FDA-Public Use
  Company Number: US-AIMMUNE THERAPEUTICS, INC.-2022AIMT02323

PATIENT

DRUGS (6)
  1. ZENPEP [Suspect]
     Active Substance: PANCRELIPASE AMYLASE\PANCRELIPASE LIPASE\PANCRELIPASE PROTEASE
     Indication: Pancreatic failure
     Dosage: 10000 PER CAPSULE, 16 CAPSULES A DAY
     Route: 048
     Dates: start: 202205, end: 2022
  2. ZENPEP [Suspect]
     Active Substance: PANCRELIPASE AMYLASE\PANCRELIPASE LIPASE\PANCRELIPASE PROTEASE
     Dosage: 10000 PER CAPSULE, 8 CAPSULES A DAY, DECREASED DOSE
     Route: 048
     Dates: start: 202208
  3. IMODIUM [Concomitant]
     Active Substance: LOPERAMIDE HYDROCHLORIDE
     Indication: Diarrhoea
     Dosage: 2 CAPSULES 2 MG, 3X/DAY
  4. DICYCLOMINE [Concomitant]
     Active Substance: DICYCLOMINE HYDROCHLORIDE
     Indication: Abdominal rigidity
     Dosage: 1 CAPSULE 10 MG, 3X/DAY AS NEEDED
  5. LOPERAMIDE HYDROCHLORIDE [Concomitant]
     Active Substance: LOPERAMIDE HYDROCHLORIDE
     Indication: Diarrhoea
     Dosage: 0.25 -2.5MG, 2 TABLETS AFTER THE FIRST DIARRHEA AND 1 AFTER EACH FOLLOWING DIARRHEA. MAX OF 8 IN 24
  6. AMLODIPINE [Concomitant]
     Active Substance: AMLODIPINE BESYLATE
     Indication: Blood pressure measurement
     Dosage: 1 PILL 10 MG WHEN BLOOD PRESSURE IS OVER 140

REACTIONS (1)
  - No adverse event [Unknown]

NARRATIVE: CASE EVENT DATE: 20220101
